FAERS Safety Report 5820210-6 (Version None)
Quarter: 2008Q3

REPORT INFORMATION
  Report Type: 
  Country: None (occurrence: None)
  Receive Date: 20080724
  Receipt Date: 20080723
  Transmission Date: 20090109
  Serious: Yes (Death, Life-Threatening, Hospitalization, Disabling)
  Sender: FDA-Public Use
  Company Number: PHEH2000US03063

PATIENT
  Sex: Male
  Weight: 70.5 kg

DRUGS (5)
  1. RAD 666 RAD+ [Suspect]
     Indication: RENAL TRANSPLANT
     Dosage: 0.75 MG, UNK
     Route: 048
     Dates: start: 19990813, end: 20000113
  2. NEORAL [Suspect]
     Indication: RENAL TRANSPLANT
     Dosage: 50 MG, BID
     Route: 048
     Dates: start: 19990813, end: 20000112
  3. PROGRAF [Suspect]
     Indication: RENAL TRANSPLANT
     Dosage: 1 MG, BID
     Route: 048
     Dates: start: 20000128, end: 20000714
  4. PREDNISONE TAB [Suspect]
     Indication: RENAL TRANSPLANT
     Dosage: 20 MG, QD
     Route: 048
     Dates: start: 19990814, end: 20000703
  5. CELLCEPT [Suspect]
     Indication: RENAL TRANSPLANT
     Dosage: 500 MG, BID
     Route: 048
     Dates: start: 20000113, end: 20000702

REACTIONS (4)
  - HYDROCEPHALUS [None]
  - HYPERTENSION [None]
  - LYMPHOMA [None]
  - LYMPHOPROLIFERATIVE DISORDER [None]
